FAERS Safety Report 11734710 (Version 29)
Quarter: 2017Q4

REPORT INFORMATION
  Report Type: Spontaneous
  Country: US (occurrence: US)
  Receive Date: 20151113
  Receipt Date: 20171229
  Transmission Date: 20180320
  Serious: Yes (Hospitalization, Other)
  Sender: FDA-Public Use
  Company Number: US-PFIZER INC-2015192970

PATIENT
  Age: 61 Year
  Sex: Male
  Weight: 71.66 kg

DRUGS (29)
  1. SUTENT [Suspect]
     Active Substance: SUNITINIB MALATE
     Indication: METASTATIC RENAL CELL CARCINOMA
     Dosage: 37.5 MG, CYCLIC (28 DAYS ON/14 DAYS OFF)
     Route: 048
     Dates: start: 20141222, end: 20151118
  2. SUTENT [Suspect]
     Active Substance: SUNITINIB MALATE
     Dosage: 25 MG, CYCLIC (25 MG DAILY FOR 28 DAYS ON/ 14 DAYS OFF)
     Route: 048
     Dates: start: 20160106
  3. FLUDOCORT [Concomitant]
     Indication: BLOOD PRESSURE FLUCTUATION
     Dosage: 0.5 MG, EVERY DAY
     Route: 048
  4. ATIVAN [Concomitant]
     Active Substance: LORAZEPAM
     Dosage: UNK
  5. LORTAB [Concomitant]
     Active Substance: ACETAMINOPHEN\HYDROCODONE BITARTRATE
     Indication: ARTHRALGIA
     Dosage: UNK
  6. SUTENT [Suspect]
     Active Substance: SUNITINIB MALATE
     Dosage: 25 MG, CYCLIC (ALTERNATING WITH 37.5 MG-28 DAYS ON/14 DAYS OFF)
     Route: 048
  7. LISINOPRIL. [Concomitant]
     Active Substance: LISINOPRIL
     Indication: BLOOD PRESSURE ABNORMAL
     Dosage: 40 MG, 1X/DAY
     Route: 048
     Dates: start: 1996
  8. SUTENT [Suspect]
     Active Substance: SUNITINIB MALATE
     Dosage: 37.5 MG, CYCLIC (ALTERNATING WITH 25 MG-28 DAYS ON/14 DAYS OFF)
     Route: 048
     Dates: start: 20161011
  9. COREG [Concomitant]
     Active Substance: CARVEDILOL
     Indication: BLOOD PRESSURE ABNORMAL
     Dosage: 25 MG, 2X/DAY
     Route: 048
     Dates: start: 2010
  10. XANAX [Concomitant]
     Active Substance: ALPRAZOLAM
     Indication: ANXIETY
     Dosage: 0.5 MG, 2X/DAY
     Dates: start: 2011
  11. VITAMIN B12 [Concomitant]
     Active Substance: CYANOCOBALAMIN
     Dosage: UNK, MONTHLY
  12. HYDROCORTISONE. [Concomitant]
     Active Substance: HYDROCORTISONE
     Indication: ADRENAL SUPPRESSION
     Dosage: 1X/DAY (15MG IN THE MORNING, 10MG AT NIGHT)
     Route: 048
  13. NYSTATIN. [Concomitant]
     Active Substance: NYSTATIN
     Dosage: UNK
  14. LIPITOR [Concomitant]
     Active Substance: ATORVASTATIN CALCIUM
     Indication: MYOCARDIAL INFARCTION
     Dosage: 10 MG, 1X/DAY
     Route: 048
     Dates: start: 2005
  15. FLUDROCORTISONE [Concomitant]
     Active Substance: FLUDROCORTISONE
     Indication: BLOOD PRESSURE ABNORMAL
     Dosage: UNK, ALTERNATE DAY  [0.1 HALF TABLET ON MWF]
     Dates: start: 2012
  16. PLAVIX [Concomitant]
     Active Substance: CLOPIDOGREL BISULFATE
     Dosage: 75 MG, ALTERNATE DAY (A DAY MWF)
     Dates: start: 2014, end: 20161205
  17. SUTENT [Suspect]
     Active Substance: SUNITINIB MALATE
     Dosage: 25 MG, CYCLIC (DAILY, 28 DAYS ON/14 DAYS OFF)
     Route: 048
     Dates: start: 20161011
  18. SUTENT [Suspect]
     Active Substance: SUNITINIB MALATE
     Dosage: 25 MG, CYCLIC [(TAKES 1- 12.5MG CAPSULE BID) FOR 28 DAYS ON / 14 DAYS OFF]
  19. PROMETHAZINE [Concomitant]
     Active Substance: PROMETHAZINE\PROMETHAZINE HYDROCHLORIDE
     Dosage: UNK
     Dates: end: 20171009
  20. VITAMIN B12 AMINO [Concomitant]
     Dosage: UNK
  21. HYDROCORTISONE. [Concomitant]
     Active Substance: HYDROCORTISONE
     Dosage: 25 MG, DAILY [15MG IN THE MORNING AND 10MG AT NIGHT]
     Dates: start: 201211
  22. FLUDOCORT [Concomitant]
     Dosage: 0.5 MG, UNK (EVERY THIRD DAY)
     Route: 048
  23. NASACORT [Concomitant]
     Active Substance: TRIAMCINOLONE ACETONIDE
     Dosage: UNK
  24. SUTENT [Suspect]
     Active Substance: SUNITINIB MALATE
     Dosage: 25 MG, CYCLIC (28 DAYS ON/14 DAYS OFF)
     Route: 048
     Dates: start: 20160127, end: 20160208
  25. SINGULAIR [Concomitant]
     Active Substance: MONTELUKAST SODIUM
     Indication: SINUS DISORDER
     Dosage: 10 MG, 1X/DAY (TAKING FOR 3 OR 4 YEARS)
     Route: 048
  26. NIASPAN [Concomitant]
     Active Substance: NIACIN
     Indication: BLOOD CHOLESTEROL ABNORMAL
     Dosage: 750 MG, 1X/DAY
     Route: 048
     Dates: start: 2005
  27. SUTENT [Suspect]
     Active Substance: SUNITINIB MALATE
     Dosage: 25 MG, CYCLIC (25 MG DAILY FOR 28 DAYS ON/ 14 DAYS OFF)
     Route: 048
     Dates: start: 20151125, end: 20160727
  28. NORVASC [Concomitant]
     Active Substance: AMLODIPINE BESYLATE
     Indication: BLOOD PRESSURE ABNORMAL
     Dosage: 2.5 MG, 1X/DAY
     Route: 048
  29. AMLODIPINE [Concomitant]
     Active Substance: AMLODIPINE BESYLATE
     Indication: BLOOD PRESSURE ABNORMAL
     Dosage: 2.5 MG, 1X/DAY
     Dates: start: 2013

REACTIONS (52)
  - Neoplasm progression [Not Recovered/Not Resolved]
  - Dysgeusia [Recovering/Resolving]
  - Platelet count decreased [Unknown]
  - Contusion [Unknown]
  - Pruritus [Unknown]
  - Muscular weakness [Unknown]
  - Peripheral swelling [Recovered/Resolved]
  - Dry skin [Unknown]
  - Oral mucosal blistering [Recovering/Resolving]
  - Weight decreased [Not Recovered/Not Resolved]
  - Hyperkeratosis [Recovered/Resolved]
  - Sinus disorder [Recovering/Resolving]
  - Lip dry [Unknown]
  - Nausea [Recovered/Resolved]
  - Sinusitis [Recovered/Resolved]
  - Ageusia [Unknown]
  - Back pain [Unknown]
  - Anaemia [Not Recovered/Not Resolved]
  - Temperature intolerance [Unknown]
  - Decreased appetite [Recovering/Resolving]
  - Joint swelling [Recovered/Resolved]
  - Fatigue [Not Recovered/Not Resolved]
  - Decreased appetite [Recovered/Resolved]
  - Oral pain [Not Recovered/Not Resolved]
  - Eating disorder [Unknown]
  - Vitamin B12 decreased [Unknown]
  - Blood creatinine increased [Unknown]
  - Dehydration [Unknown]
  - Pain in extremity [Unknown]
  - Dyspnoea [Unknown]
  - Pyrexia [Unknown]
  - Adrenal insufficiency [Unknown]
  - Lip blister [Unknown]
  - Gait disturbance [Recovering/Resolving]
  - Viral infection [Unknown]
  - Rash [Unknown]
  - Monocyte count decreased [Unknown]
  - Lip exfoliation [Unknown]
  - Tooth disorder [Recovered/Resolved]
  - Asthenia [Unknown]
  - Dry mouth [Unknown]
  - Skin exfoliation [Unknown]
  - Oral discomfort [Recovering/Resolving]
  - Sunburn [Unknown]
  - Upper respiratory tract infection [Unknown]
  - White blood cell count decreased [Unknown]
  - Drug dose omission [Unknown]
  - Diarrhoea [Recovered/Resolved]
  - Blister [Recovered/Resolved]
  - Limb discomfort [Unknown]
  - Fluid intake reduced [Recovering/Resolving]
  - Cough [Recovering/Resolving]

NARRATIVE: CASE EVENT DATE: 20150411
